FAERS Safety Report 21471120 (Version 7)
Quarter: 2023Q2

REPORT INFORMATION
  Report Type: Report from Study
  Country: AR (occurrence: AR)
  Receive Date: 20221018
  Receipt Date: 20230428
  Transmission Date: 20230722
  Serious: Yes (Death, Life-Threatening, Other)
  Sender: FDA-Public Use
  Company Number: AR-NOVARTISPH-NVSC2022AR233552

PATIENT
  Age: 53 Year
  Sex: Female

DRUGS (4)
  1. KISQALI [Suspect]
     Active Substance: RIBOCICLIB
     Indication: Breast cancer metastatic
     Dosage: 600 MG, QD
     Route: 048
     Dates: start: 20221006, end: 20221123
  2. KISQALI [Suspect]
     Active Substance: RIBOCICLIB
     Dosage: 200 MG, TID
     Route: 048
     Dates: start: 20221007
  3. KISQALI [Suspect]
     Active Substance: RIBOCICLIB
     Dosage: 600 MG, QD
     Route: 048
  4. FEMARA [Suspect]
     Active Substance: LETROZOLE
     Indication: Breast cancer metastatic
     Dosage: 2.5 MG, QD
     Route: 048
     Dates: start: 20221006, end: 20221123

REACTIONS (19)
  - Cardiac arrest [Fatal]
  - Metastatic neoplasm [Fatal]
  - Chest pain [Unknown]
  - Dyspnoea [Unknown]
  - Throat irritation [Unknown]
  - Hot flush [Unknown]
  - Burning sensation [Unknown]
  - Fluid retention [Unknown]
  - Dysphagia [Unknown]
  - Fatigue [Unknown]
  - Peripheral swelling [Unknown]
  - Gait disturbance [Unknown]
  - Vomiting [Recovering/Resolving]
  - Diarrhoea [Recovering/Resolving]
  - Headache [Recovering/Resolving]
  - Neoplasm [Unknown]
  - Lymphoedema [Unknown]
  - Inflammation [Recovering/Resolving]
  - Illness [Unknown]

NARRATIVE: CASE EVENT DATE: 20221008
